FAERS Safety Report 8996936 (Version 2)
Quarter: 2013Q1

REPORT INFORMATION
  Report Type: Spontaneous
  Country: JP (occurrence: JP)
  Receive Date: 20130104
  Receipt Date: 20130124
  Transmission Date: 20140127
  Serious: No
  Sender: FDA-Public Use
  Company Number: JP-UCBSA-074363

PATIENT
  Age: 74 Year
  Sex: Female

DRUGS (2)
  1. E KEPPRA [Suspect]
     Indication: EPILEPSY
     Route: 048
  2. CARBAMAZEPINE [Suspect]
     Indication: EPILEPSY
     Route: 048

REACTIONS (1)
  - Neutropenia [Recovering/Resolving]
